FAERS Safety Report 9614120 (Version 2)
Quarter: 2013Q4

REPORT INFORMATION
  Report Type: Spontaneous
  Country: US (occurrence: US)
  Receive Date: 20131011
  Receipt Date: 20131111
  Transmission Date: 20140711
  Serious: No
  Sender: FDA-Public Use
  Company Number: US-BIOGENIDEC-2013BI094874

PATIENT
  Age: 36 Year
  Sex: Female

DRUGS (9)
  1. AVONEX [Suspect]
     Indication: MULTIPLE SCLEROSIS
     Route: 030
     Dates: start: 19970701, end: 2003
  2. AVONEX [Suspect]
     Indication: MULTIPLE SCLEROSIS
     Route: 030
     Dates: start: 2003, end: 2013
  3. AVONEX [Suspect]
     Indication: MULTIPLE SCLEROSIS
     Route: 030
     Dates: start: 201309
  4. AMPYRA [Concomitant]
     Indication: GAIT DISTURBANCE
     Dates: start: 2012
  5. TEGRETOL [Concomitant]
     Indication: PAIN IN EXTREMITY
     Route: 048
  6. LYRICA [Concomitant]
     Indication: PAIN IN EXTREMITY
     Route: 048
  7. CYMBALTA [Concomitant]
     Indication: PAIN IN EXTREMITY
     Route: 048
  8. BACLOFEN [Concomitant]
     Indication: PAIN IN EXTREMITY
     Route: 048
  9. MODAFINIL [Concomitant]
     Indication: FATIGUE
     Route: 048

REACTIONS (6)
  - Fall [Recovered/Resolved]
  - Laceration [Recovered/Resolved]
  - Somnolence [Recovered/Resolved]
  - Limb injury [Recovered/Resolved]
  - Onycholysis [Recovered/Resolved]
  - Drug hypersensitivity [Recovered/Resolved]
